FAERS Safety Report 5317911-5 (Version None)
Quarter: 2007Q2

REPORT INFORMATION
  Report Type: 
  Country: None (occurrence: None)
  Receive Date: 20070507
  Receipt Date: 20070427
  Transmission Date: 20071010
  Serious: Yes (Other)
  Sender: FDA-Public Use
  Company Number: B0468478A

PATIENT
  Age: 51 Year
  Sex: Male

DRUGS (6)
  1. SEREVENT [Suspect]
     Indication: ASTHMA
     Dosage: 2PUFF TWICE PER DAY
     Route: 055
     Dates: start: 20070327
  2. VENTOLIN [Concomitant]
  3. BECOTIDE [Concomitant]
  4. THEOPHYLLINE [Concomitant]
  5. OMEPRAZOLE [Concomitant]
  6. ARTHROTEC [Concomitant]

REACTIONS (4)
  - AGGRESSION [None]
  - AGITATION [None]
  - ANTISOCIAL BEHAVIOUR [None]
  - GAIT DISTURBANCE [None]
